FAERS Safety Report 8914755 (Version 2)
Quarter: 2012Q4

REPORT INFORMATION
  Report Type: 
  Country: FR (occurrence: FR)
  Receive Date: 20121119
  Receipt Date: 20121218
  Transmission Date: 20130627
  Serious: Yes (Disabling)
  Sender: FDA-Public Use
  Company Number: FR-BAYER-2012-119616

PATIENT
  Age: 34 Year
  Sex: Female

DRUGS (6)
  1. IZILOX [Suspect]
     Indication: BRONCHITIS
     Dosage: 400 mg, QD
     Route: 048
     Dates: start: 20121020, end: 20121026
  2. PARACETAMOL [Concomitant]
     Dosage: UNK
     Dates: start: 20121020
  3. DETURGYLONE [Concomitant]
     Dosage: UNK
     Dates: start: 20121020
  4. SOLUPRED [PREDNISOLONE] [Concomitant]
     Dosage: Daily dose 80 mg
     Route: 048
     Dates: start: 20121020, end: 20121024
  5. RHINOFLUIMUCIL [Concomitant]
     Dosage: 3 DF, QD
     Route: 045
     Dates: start: 20121020, end: 20121030
  6. CETIRIZINE HYDROCHLORIDE [Concomitant]
     Dosage: Daily dose 10 mg
     Route: 048
     Dates: start: 20121020, end: 20121103

REACTIONS (2)
  - Ageusia [Not Recovered/Not Resolved]
  - Anosmia [Not Recovered/Not Resolved]
